FAERS Safety Report 21998069 (Version 1)
Quarter: 2023Q1

REPORT INFORMATION
  Report Type: Spontaneous
  Country: KR (occurrence: KR)
  Receive Date: 20230216
  Receipt Date: 20230216
  Transmission Date: 20230418
  Serious: Yes (Hospitalization, Other)
  Sender: FDA-Public Use
  Company Number: KR-JNJFOC-20230214578

PATIENT

DRUGS (2)
  1. ACETAMINOPHEN [Suspect]
     Active Substance: ACETAMINOPHEN
     Indication: Product used for unknown indication
     Route: 048
  2. ALCOHOL [Suspect]
     Active Substance: ALCOHOL
     Indication: Product used for unknown indication
     Route: 048

REACTIONS (20)
  - Suicide attempt [Unknown]
  - Hepatocellular injury [Unknown]
  - Poisoning deliberate [Unknown]
  - Abdominal pain [Unknown]
  - Dyspepsia [Unknown]
  - Headache [Unknown]
  - Dizziness [Unknown]
  - Confusional state [Unknown]
  - Loss of consciousness [Unknown]
  - Chest pain [Unknown]
  - Dyspnoea [Unknown]
  - Palpitations [Unknown]
  - Sinus tachycardia [Unknown]
  - Bradycardia [Unknown]
  - Electrocardiogram T wave abnormal [Unknown]
  - Electrocardiogram QT prolonged [Unknown]
  - Nausea [Unknown]
  - Vomiting [Unknown]
  - Toxicity to various agents [Unknown]
  - Intentional overdose [Unknown]
